FAERS Safety Report 8892629 (Version 1)
Quarter: 2012Q4

REPORT INFORMATION
  Report Type: 
  Country: US (occurrence: US)
  Receive Date: 20121107
  Receipt Date: 20121107
  Transmission Date: 20130627
  Serious: No
  Sender: FDA-Public Use
  Company Number: US-AMGEN-USASP2011057100

PATIENT
  Age: 7 Year
  Sex: Female

DRUGS (2)
  1. ENBREL [Suspect]
     Indication: JUVENILE ARTHRITIS
     Dates: start: 20111028
  2. METHOTREXATE [Concomitant]
     Dates: start: 201104

REACTIONS (2)
  - Injection site reaction [Recovering/Resolving]
  - Injection site bruising [Recovering/Resolving]
